FAERS Safety Report 9032950 (Version 1)
Quarter: 2013Q1

REPORT INFORMATION
  Report Type: Spontaneous
  Country: US (occurrence: US)
  Receive Date: 20130128
  Receipt Date: 20130128
  Transmission Date: 20140127
  Serious: Yes (Hospitalization)
  Sender: FDA-Public Use
  Company Number: US-JNJFOC-20130108337

PATIENT
  Age: 9 Decade
  Sex: Male

DRUGS (3)
  1. ZYTIGA [Suspect]
     Indication: PROSTATE CANCER METASTATIC
     Route: 048
     Dates: start: 2012
  2. ZYTIGA [Suspect]
     Indication: PROSTATE CANCER METASTATIC
     Dosage: 250 MG X 4
     Route: 048
     Dates: start: 2012, end: 2012
  3. PREDNISONE [Concomitant]
     Indication: PROSTATE CANCER METASTATIC
     Route: 048
     Dates: start: 2012

REACTIONS (2)
  - Cardio-respiratory arrest [Recovered/Resolved]
  - Hypokalaemia [Unknown]
